FAERS Safety Report 6727399-5 (Version None)
Quarter: 2010Q2

REPORT INFORMATION
  Report Type: 
  Country: None (occurrence: None)
  Receive Date: 20100517
  Receipt Date: 20100506
  Transmission Date: 20101027
  Serious: Yes (Other)
  Sender: FDA-Public Use
  Company Number: US-SANOFI-AVENTIS-2010SA026854

PATIENT
  Sex: Male

DRUGS (1)
  1. LOVENOX [Suspect]
     Route: 065
     Dates: start: 20100501

REACTIONS (1)
  - MENINGITIS [None]
